FAERS Safety Report 6864411-7 (Version None)
Quarter: 2010Q3

REPORT INFORMATION
  Report Type: 
  Country: None (occurrence: None)
  Receive Date: 20100721
  Receipt Date: 20080705
  Transmission Date: 20110219
  Serious: No
  Sender: FDA-Public Use
  Company Number: US-PFIZER INC-2008026462

PATIENT
  Sex: Female
  Weight: 53.6 kg

DRUGS (3)
  1. CHANTIX [Suspect]
     Indication: SMOKING CESSATION THERAPY
     Route: 048
     Dates: start: 20080303, end: 20080311
  2. ZITHROMAX [Concomitant]
  3. DEPO-PROVERA [Concomitant]

REACTIONS (15)
  - ABNORMAL DREAMS [None]
  - ANGER [None]
  - ANXIETY [None]
  - CHEST PAIN [None]
  - DEPRESSION [None]
  - DYSKINESIA [None]
  - HOT FLUSH [None]
  - HYPERTENSION [None]
  - MALAISE [None]
  - MENOPAUSE [None]
  - MUSCLE STRAIN [None]
  - NERVOUSNESS [None]
  - PLEURISY [None]
  - SLEEP DISORDER [None]
  - WEIGHT INCREASED [None]
